FAERS Safety Report 21638819 (Version 1)
Quarter: 2022Q4

REPORT INFORMATION
  Report Type: Spontaneous
  Country: AU (occurrence: None)
  Receive Date: 20221124
  Receipt Date: 20221124
  Transmission Date: 20230113
  Serious: Yes (Hospitalization)
  Sender: FDA-Public Use
  Company Number: AU-PFIZER INC-PV202200106957

PATIENT
  Age: 68 Year
  Sex: Male

DRUGS (4)
  1. METHOTREXATE [Suspect]
     Active Substance: METHOTREXATE
     Indication: Pityriasis rubra pilaris
     Route: 048
  2. ACITRETIN [Concomitant]
     Active Substance: ACITRETIN
     Route: 065
  3. ACITRETIN [Concomitant]
     Active Substance: ACITRETIN
     Route: 048
  4. ACITRETIN [Concomitant]
     Active Substance: ACITRETIN
     Route: 065

REACTIONS (6)
  - Nausea [Unknown]
  - Drug ineffective for unapproved indication [Unknown]
  - Product use in unapproved indication [Unknown]
  - Oedema [Unknown]
  - Rash [Unknown]
  - Treatment failure [Unknown]

NARRATIVE: CASE EVENT DATE: 20180601
